FAERS Safety Report 8961269 (Version 2)
Quarter: 2013Q1

REPORT INFORMATION
  Report Type: Report from Study
  Country: US (occurrence: US)
  Receive Date: 20121213
  Receipt Date: 20130102
  Transmission Date: 20140127
  Serious: Yes (Other)
  Sender: FDA-Public Use
  Company Number: US-JNJFOC-20121204146

PATIENT
  Sex: Male

DRUGS (5)
  1. STELARA [Suspect]
     Indication: PSORIASIS
     Route: 058
     Dates: start: 20121207
  2. STELARA [Suspect]
     Indication: PSORIASIS
     Route: 058
     Dates: start: 2010
  3. STELARA [Suspect]
     Indication: PSORIASIS
     Route: 058
     Dates: start: 2010
  4. STELARA [Suspect]
     Indication: PSORIASIS
     Route: 058
     Dates: start: 2010, end: 2011
  5. AMBIEN [Concomitant]
     Indication: SLEEP DISORDER

REACTIONS (3)
  - Pneumonia [Recovered/Resolved]
  - Nasopharyngitis [Not Recovered/Not Resolved]
  - Psoriasis [Recovered/Resolved]
